FAERS Safety Report 10744239 (Version 1)
Quarter: 2015Q1

REPORT INFORMATION
  Report Type: Spontaneous
  Country: DE (occurrence: DE)
  Receive Date: 20150128
  Receipt Date: 20150128
  Transmission Date: 20150721
  Serious: Yes (Congenital Anomaly, Other)
  Sender: FDA-Public Use
  Company Number: DE-HORIZON-PRE-0012-2015

PATIENT
  Sex: Male
  Weight: 2.9 kg

DRUGS (3)
  1. CLEXANE 40 [Concomitant]
     Indication: PROPHYLAXIS
     Route: 064
     Dates: start: 20131231, end: 20141004
  2. PREDNISONE. [Suspect]
     Active Substance: PREDNISONE
     Route: 064
     Dates: start: 20140307, end: 20141004
  3. CENTRUM MATERNA [Concomitant]
     Indication: PROPHYLAXIS OF NEURAL TUBE DEFECT
     Route: 064
     Dates: start: 20131231, end: 20140306

REACTIONS (3)
  - Small for dates baby [Unknown]
  - Talipes [Recovered/Resolved with Sequelae]
  - Maternal drugs affecting foetus [None]

NARRATIVE: CASE EVENT DATE: 20141004
